FAERS Safety Report 9438791 (Version 2)
Quarter: 2013Q3

REPORT INFORMATION
  Report Type: Spontaneous
  Country: NL (occurrence: NL)
  Receive Date: 20130802
  Receipt Date: 20130822
  Transmission Date: 20140515
  Serious: Yes (Other)
  Sender: FDA-Public Use
  Company Number: NL-AMGEN-NLDSP2013053982

PATIENT
  Age: 54 Year
  Sex: 0

DRUGS (1)
  1. ENBREL [Suspect]
     Indication: PSORIATIC ARTHROPATHY
     Dosage: 50 MG, 2X/WEEK
     Route: 065
     Dates: start: 20130730

REACTIONS (5)
  - Psoriatic arthropathy [Unknown]
  - Erythema [Recovered/Resolved]
  - Drug ineffective [Unknown]
  - Injection site reaction [Unknown]
  - Injection site pain [Unknown]
